FAERS Safety Report 12637044 (Version 1)
Quarter: 2016Q3

REPORT INFORMATION
  Report Type: Not Available
  Country: US (occurrence: US)
  Receive Date: 20160809
  Receipt Date: 20160809
  Transmission Date: 20161109
  Serious: Yes (Hospitalization)
  Sender: FDA-Public Use
  Company Number: US-BEH-2014042195

PATIENT
  Age: 48 Year
  Sex: Female
  Weight: 165 kg

DRUGS (33)
  1. PRIVIGEN [Suspect]
     Active Substance: HUMAN IMMUNOGLOBULIN G
     Dosage: 20 GM; 30 GM DAILY X2
     Route: 042
     Dates: start: 20121116, end: 20121116
  2. CYCLOBENZAPRINE [Concomitant]
     Active Substance: CYCLOBENZAPRINE
  3. GADOBENATE DIMEGLUMINE [Concomitant]
     Active Substance: GADOBENATE DIMEGLUMINE
  4. LIDODERM [Concomitant]
     Active Substance: LIDOCAINE
     Route: 062
  5. PRIVIGEN [Suspect]
     Active Substance: HUMAN IMMUNOGLOBULIN G
     Dosage: 20 GM; 30 GM DAILY X2
     Route: 042
     Dates: start: 20121117, end: 20121117
  6. PRIVIGEN [Suspect]
     Active Substance: HUMAN IMMUNOGLOBULIN G
     Dosage: 10 GM;60 GM DAILY X6
     Route: 042
     Dates: start: 20121119, end: 20121119
  7. INSULIN ASPART [Concomitant]
     Active Substance: INSULIN ASPART
  8. PRIVIGEN [Suspect]
     Active Substance: HUMAN IMMUNOGLOBULIN G
     Dosage: 20 GM; 60 GM DAILY X6
     Route: 042
     Dates: start: 20121118, end: 20121118
  9. DEXAMETHASONE. [Concomitant]
     Active Substance: DEXAMETHASONE
  10. PREGABALIN. [Concomitant]
     Active Substance: PREGABALIN
  11. VANCOMYCIN [Concomitant]
     Active Substance: VANCOMYCIN
  12. PRIVIGEN [Suspect]
     Active Substance: HUMAN IMMUNOGLOBULIN G
     Dosage: 60 GM X 6 DAYS
     Route: 042
     Dates: start: 20121121, end: 20121121
  13. BUPROPION. [Concomitant]
     Active Substance: BUPROPION
  14. CEFEPIME [Concomitant]
     Active Substance: CEFEPIME HYDROCHLORIDE
  15. SIMETHICONE (DIMETHICONE) [Concomitant]
     Active Substance: DIMETHICONE
  16. ZONISAMIDE. [Concomitant]
     Active Substance: ZONISAMIDE
  17. PRIVIGEN [Suspect]
     Active Substance: HUMAN IMMUNOGLOBULIN G
     Dosage: 10 GM; 60 GM X6 DAYS
     Route: 042
     Dates: start: 20121123, end: 20121123
  18. PRIVIGEN [Suspect]
     Active Substance: HUMAN IMMUNOGLOBULIN G
     Dosage: 20 GM; 60 GM X 6 DAYS
     Route: 042
     Dates: start: 20121124, end: 20121124
  19. SOMA [Concomitant]
     Active Substance: CARISOPRODOL
  20. NYSTATIN. [Concomitant]
     Active Substance: NYSTATIN
     Route: 061
  21. PRIVIGEN [Suspect]
     Active Substance: HUMAN IMMUNOGLOBULIN G
     Dosage: 20 GM; 60 GM DAILY X 6
     Route: 042
     Dates: start: 20121119, end: 20121119
  22. PRIVIGEN [Suspect]
     Active Substance: HUMAN IMMUNOGLOBULIN G
     Dosage: 20 GM; 60 GM DAILY X6
     Route: 042
     Dates: start: 20121120, end: 20121120
  23. SENNA [Concomitant]
     Active Substance: SENNA LEAF\SENNOSIDES\SENNOSIDES A AND B
  24. PRIVIGEN [Suspect]
     Active Substance: HUMAN IMMUNOGLOBULIN G
     Indication: DEMYELINATING POLYNEUROPATHY
     Dosage: 10 G OF 30 G TOTAL DAILY DOSE X 2
     Route: 042
     Dates: start: 20121116, end: 20121116
  25. PRIVIGEN [Suspect]
     Active Substance: HUMAN IMMUNOGLOBULIN G
     Dosage: 10 GM;60 GM DAILY X6
     Route: 042
     Dates: start: 20121118, end: 20121118
  26. PRIVIGEN [Suspect]
     Active Substance: HUMAN IMMUNOGLOBULIN G
     Dosage: 20 GM; 60 GM X6 DAYS
     Route: 042
     Dates: start: 20121121, end: 20121121
  27. PRIVIGEN [Suspect]
     Active Substance: HUMAN IMMUNOGLOBULIN G
     Dosage: 60 GM X6 DAYS
     Route: 042
     Dates: start: 20121123, end: 20121123
  28. MIRALAX [Concomitant]
     Active Substance: POLYETHYLENE GLYCOL 3350
  29. PRIVIGEN [Suspect]
     Active Substance: HUMAN IMMUNOGLOBULIN G
     Dosage: 10 GM;30 GM DAILY X2
     Route: 042
     Dates: start: 20121117, end: 20121117
  30. PRIVIGEN [Suspect]
     Active Substance: HUMAN IMMUNOGLOBULIN G
     Dosage: 60 GM DAILY X6
     Route: 042
     Dates: start: 20121120, end: 20121120
  31. PRIVIGEN [Suspect]
     Active Substance: HUMAN IMMUNOGLOBULIN G
     Dosage: 20 GM; 60 GM DAILY X6 DAYS
     Route: 042
     Dates: start: 20121123, end: 20121123
  32. HEPARIN [Concomitant]
     Active Substance: HEPARIN SODIUM
  33. LORAZEPAM. [Concomitant]
     Active Substance: LORAZEPAM

REACTIONS (1)
  - Isoimmune haemolytic disease [Unknown]

NARRATIVE: CASE EVENT DATE: 20121123
